FAERS Safety Report 7998211-1 (Version None)
Quarter: 2011Q4

REPORT INFORMATION
  Report Type: 
  Country: None (occurrence: None)
  Receive Date: 20111221
  Receipt Date: 20110406
  Transmission Date: 20120403
  Serious: No
  Sender: FDA-Public Use
  Company Number: US-GLAXOSMITHKLINE-A0922749A

PATIENT
  Sex: Female

DRUGS (2)
  1. NASAL SPRAY [Concomitant]
  2. LOVAZA [Suspect]
     Indication: BLOOD CHOLESTEROL INCREASED
     Dosage: 4CAP TWICE PER DAY
     Dates: start: 20100101

REACTIONS (2)
  - DRY THROAT [None]
  - DRY MOUTH [None]
